FAERS Safety Report 18590329 (Version 1)
Quarter: 2020Q4

REPORT INFORMATION
  Report Type: Spontaneous
  Country: AU (occurrence: AU)
  Receive Date: 20201208
  Receipt Date: 20201208
  Transmission Date: 20210114
  Serious: Yes (Hospitalization, Other)
  Sender: FDA-Public Use
  Company Number: AU-SLATE RUN PHARMACEUTICALS-20AU000342

PATIENT

DRUGS (2)
  1. VANCOMYCIN HYDROCHLORIDE USP [Suspect]
     Active Substance: VANCOMYCIN HYDROCHLORIDE
     Indication: CLOSTRIDIUM DIFFICILE INFECTION
     Route: 048
  2. METRONIDAZOLE. [Concomitant]
     Active Substance: METRONIDAZOLE
     Indication: CLOSTRIDIUM DIFFICILE INFECTION
     Route: 042

REACTIONS (5)
  - Small intestinal obstruction [Unknown]
  - Sepsis [Recovered/Resolved]
  - Rectal haemorrhage [Recovered/Resolved]
  - Maternal exposure during pregnancy [Unknown]
  - Crohn^s disease [Unknown]
